FAERS Safety Report 12636830 (Version 1)
Quarter: 2016Q3

REPORT INFORMATION
  Report Type: Spontaneous
  Country: US (occurrence: US)
  Receive Date: 20160809
  Receipt Date: 20160809
  Transmission Date: 20161109
  Serious: No
  Sender: FDA-Public Use
  Company Number: US-BAYER-2016-147713

PATIENT
  Age: 57 Year
  Sex: Female

DRUGS (9)
  1. MOXIFLOXACIN ORAL [Suspect]
     Active Substance: MOXIFLOXACIN
     Indication: MYCOBACTERIAL INFECTION
     Dosage: UNK
  2. PYRAZINAMIDE. [Concomitant]
     Active Substance: PYRAZINAMIDE
  3. ISONIAZID. [Concomitant]
     Active Substance: ISONIAZID
     Dosage: UNK
  4. CEPHALEXIN. [Concomitant]
     Active Substance: CEPHALEXIN
     Dosage: UNK
  5. ETHAMBUTOL [Concomitant]
     Active Substance: ETHAMBUTOL HYDROCHLORIDE
     Dosage: UNK
  6. VITAMIN B6 [Concomitant]
     Active Substance: PYRIDOXINE HYDROCHLORIDE
  7. RIFAMPIN. [Concomitant]
     Active Substance: RIFAMPIN
     Dosage: UNK
  8. AZITHROMYCIN ANHYDROUS. [Concomitant]
     Active Substance: AZITHROMYCIN ANHYDROUS
     Indication: MYCOBACTERIAL INFECTION
     Dosage: UNK
  9. PYRIDOXINE [Concomitant]
     Active Substance: PYRIDOXINE
     Dosage: UNK

REACTIONS (1)
  - Off label use [None]
